FAERS Safety Report 15697462 (Version 2)
Quarter: 2018Q4

REPORT INFORMATION
  Report Type: Report from Study
  Country: IN (occurrence: IN)
  Receive Date: 20181207
  Receipt Date: 20181221
  Transmission Date: 20190205
  Serious: Yes (Other)
  Sender: FDA-Public Use
  Company Number: IN-SUN PHARMACEUTICAL INDUSTRIES LTD-2018R1-192322

PATIENT
  Age: 57 Year
  Sex: Male
  Weight: 63.6 kg

DRUGS (5)
  1. CEFIXIME. [Concomitant]
     Active Substance: CEFIXIME
     Indication: INFECTION PROPHYLAXIS
     Dosage: 200 MILLIGRAM, BID
     Route: 048
     Dates: start: 20181124
  2. URIMAX [Concomitant]
     Active Substance: TAMSULOSIN HYDROCHLORIDE
     Indication: DYSURIA
     Dosage: 0.4 MILLIGRAM, HS
     Route: 048
     Dates: start: 20181025
  3. ANXIT [Concomitant]
     Indication: INSOMNIA
     Dosage: 0.25 MG, HS
     Route: 048
     Dates: start: 20181114
  4. LEUPROLIDE ACETATE. [Suspect]
     Active Substance: LEUPROLIDE ACETATE
     Indication: PROSTATE CANCER
     Dosage: 7.5 MILLIGRAM, ONCE IN 4 WEEKS
     Route: 030
     Dates: start: 20181024, end: 20181024
  5. REFRESH [Concomitant]
     Active Substance: UNSPECIFIED INGREDIENT
     Indication: NUTRITIONAL SUPPLEMENTATION
     Dosage: 10 MILLILITER, QD
     Route: 048
     Dates: start: 20181025

REACTIONS (1)
  - Ventricular hypokinesia [Recovered/Resolved]

NARRATIVE: CASE EVENT DATE: 20181124
